FAERS Safety Report 8132399-7 (Version None)
Quarter: 2012Q1

REPORT INFORMATION
  Report Type: 
  Country: None (occurrence: None)
  Receive Date: 20120213
  Receipt Date: 20120201
  Transmission Date: 20120608
  Serious: Yes (Hospitalization, Other)
  Sender: FDA-Public Use
  Company Number: US-ELI_LILLY_AND_COMPANY-US201007007481

PATIENT
  Sex: Female

DRUGS (9)
  1. FORTEO [Suspect]
     Dosage: 20 UG, QD
     Route: 065
  2. FORTEO [Suspect]
     Indication: OSTEOPOROSIS
     Dosage: 20 UG, QD
     Route: 065
     Dates: start: 20100601
  3. CELEBREX [Concomitant]
  4. FORTEO [Suspect]
     Dosage: 20 UG, QD
     Route: 065
  5. FORTEO [Suspect]
     Dosage: 20 UG, QD
     Route: 065
     Dates: end: 20110227
  6. FORTEO [Suspect]
     Dosage: 20 UG, QD
     Route: 065
  7. LISINOPRIL [Concomitant]
  8. ASPIRIN [Concomitant]
  9. MIACALCIN [Concomitant]

REACTIONS (18)
  - INFECTION [None]
  - SCOLIOSIS [None]
  - IMPAIRED HEALING [None]
  - BACK PAIN [None]
  - OEDEMA PERIPHERAL [None]
  - LIMB INJURY [None]
  - OPEN WOUND [None]
  - FALL [None]
  - BACK DISORDER [None]
  - WOUND SECRETION [None]
  - LACERATION [None]
  - WOUND COMPLICATION [None]
  - DIARRHOEA [None]
  - HIP FRACTURE [None]
  - FLUID RETENTION [None]
  - SKIN INJURY [None]
  - WOUND HAEMORRHAGE [None]
  - FEELING ABNORMAL [None]
